FAERS Safety Report 21040023 (Version 1)
Quarter: 2022Q3

REPORT INFORMATION
  Report Type: Spontaneous
  Country: US (occurrence: None)
  Receive Date: 20220704
  Receipt Date: 20220704
  Transmission Date: 20221026
  Serious: Yes (Hospitalization)
  Sender: FDA-Public Use
  Company Number: US-Global Blood Therapeutics Inc-US-GBT-22-02128

PATIENT
  Age: 30 Year
  Sex: Female

DRUGS (11)
  1. OXBRYTA [Suspect]
     Active Substance: VOXELOTOR
     Indication: Sickle cell disease
     Route: 048
     Dates: start: 20211015
  2. FOLIC ACID [Concomitant]
     Active Substance: FOLIC ACID
  3. HYDROMORPHONE [Concomitant]
     Active Substance: HYDROMORPHONE
  4. lidocaine/prilocaine topical anesthetic cream [Concomitant]
  5. loperimide [Concomitant]
     Dosage: AS NEEDED.
  6. VALACYCLOVIR [Concomitant]
     Active Substance: VALACYCLOVIR HYDROCHLORIDE
  7. LORATADINE [Concomitant]
     Active Substance: LORATADINE
  8. POLYETHYLENE GLYCOL [Concomitant]
     Active Substance: POLYETHYLENE GLYCOL
  9. LACTULOSE [Concomitant]
     Active Substance: LACTULOSE
  10. Breoelipta [Concomitant]
  11. DEFEROXAMINE MESYLATE [Concomitant]
     Active Substance: DEFEROXAMINE MESYLATE

REACTIONS (4)
  - Sickle cell anaemia with crisis [Not Recovered/Not Resolved]
  - Sickle cell anaemia with crisis [Not Recovered/Not Resolved]
  - Sickle cell anaemia with crisis [Recovering/Resolving]
  - Product dose omission issue [Unknown]

NARRATIVE: CASE EVENT DATE: 20220402
